FAERS Safety Report 5164682-1 (Version None)
Quarter: 2006Q4

REPORT INFORMATION
  Report Type: 
  Country: None (occurrence: None)
  Receive Date: 20061205
  Receipt Date: 20061128
  Transmission Date: 20070319
  Serious: Yes (Other)
  Sender: FDA-Public Use
  Company Number: GB-GLAXOSMITHKLINE-B0448359A

PATIENT
  Sex: Male

DRUGS (1)
  1. NIQUITIN CQ 2MG LOZENGE [Suspect]
     Indication: SMOKING CESSATION THERAPY
     Route: 002

REACTIONS (5)
  - DEPENDENCE [None]
  - MEDICATION RESIDUE [None]
  - PALLOR [None]
  - TREATMENT NONCOMPLIANCE [None]
  - WEIGHT INCREASED [None]
